FAERS Safety Report 7876096-1 (Version None)
Quarter: 2011Q4

REPORT INFORMATION
  Report Type: 
  Country: None (occurrence: None)
  Receive Date: 20111031
  Receipt Date: 20111020
  Transmission Date: 20120403
  Serious: Yes (Hospitalization)
  Sender: FDA-Public Use
  Company Number: US-JNJFOC-20111010194

PATIENT
  Sex: Female

DRUGS (5)
  1. ANALGESICS [Concomitant]
  2. REMICADE [Suspect]
     Route: 042
     Dates: start: 20110101
  3. NSAIDS [Concomitant]
  4. METHOTREXATE [Concomitant]
     Route: 048
  5. REMICADE [Suspect]
     Indication: PSORIATIC ARTHROPATHY
     Route: 042
     Dates: end: 20110101

REACTIONS (2)
  - RESPIRATORY FAILURE [None]
  - CARDIAC FAILURE [None]
